FAERS Safety Report 7964942-2 (Version None)
Quarter: 2011Q4

REPORT INFORMATION
  Report Type: 
  Country: None (occurrence: None)
  Receive Date: 20111208
  Receipt Date: 20111208
  Transmission Date: 20120403
  Serious: Yes (Other)
  Sender: FDA-Public Use
  Company Number: None

PATIENT
  Age: 80 Year
  Sex: Male
  Weight: 131.54 kg

DRUGS (1)
  1. VOLTAREN [Suspect]
     Indication: ARTHRALGIA
     Dosage: STANDARD
     Route: 061
     Dates: start: 20110901, end: 20111201

REACTIONS (2)
  - DRUG HYPERSENSITIVITY [None]
  - MUSCLE SPASMS [None]
